FAERS Safety Report 26165585 (Version 1)
Quarter: 2025Q4

REPORT INFORMATION
  Report Type: Spontaneous
  Country: US (occurrence: US)
  Receive Date: 20251216
  Receipt Date: 20251216
  Transmission Date: 20260119
  Serious: No
  Sender: Harrow Health
  Company Number: US-HARROW-HAR-2025-US-01480

PATIENT
  Sex: Female

DRUGS (1)
  1. VEVYE [Suspect]
     Active Substance: CYCLOSPORINE

REACTIONS (1)
  - Eye pruritus [Unknown]
